FAERS Safety Report 13597875 (Version 2)
Quarter: 2017Q2

REPORT INFORMATION
  Report Type: Spontaneous
  Country: NL (occurrence: NL)
  Receive Date: 20170531
  Receipt Date: 20170609
  Transmission Date: 20170830
  Serious: Yes (Death)
  Sender: FDA-Public Use
  Company Number: PHHY2017NL079724

PATIENT
  Age: 61 Year
  Sex: Male
  Weight: 85 kg

DRUGS (3)
  1. PROPRANOLOL [Concomitant]
     Active Substance: PROPRANOLOL HYDROCHLORIDE
     Indication: PRODUCT USED FOR UNKNOWN INDICATION
     Dosage: 40 MG, (3DD0.5 TABLET)
     Route: 065
  2. RITALIN [Suspect]
     Active Substance: METHYLPHENIDATE HYDROCHLORIDE
     Indication: ATTENTION DEFICIT/HYPERACTIVITY DISORDER
     Dosage: 5 MG, TID
     Route: 065
     Dates: start: 20150708
  3. RITALIN [Suspect]
     Active Substance: METHYLPHENIDATE HYDROCHLORIDE
     Dosage: 10 MG, TID
     Route: 065
     Dates: start: 20150721

REACTIONS (6)
  - Restlessness [Fatal]
  - Completed suicide [Fatal]
  - Affect lability [Fatal]
  - Hypophagia [Fatal]
  - Insomnia [Fatal]
  - Akathisia [Fatal]

NARRATIVE: CASE EVENT DATE: 20150708
